FAERS Safety Report 13469558 (Version 1)
Quarter: 2017Q2

REPORT INFORMATION
  Report Type: Report from Study
  Country: BA (occurrence: BA)
  Receive Date: 20170421
  Receipt Date: 20170421
  Transmission Date: 20170830
  Serious: Yes (Other)
  Sender: FDA-Public Use
  Company Number: BA-ROCHE-1551094

PATIENT

DRUGS (3)
  1. BEVACIZUMAB [Suspect]
     Active Substance: BEVACIZUMAB
     Indication: COLORECTAL CANCER METASTATIC
     Dosage: EVERY 2 WEEKS
     Route: 042
  2. CAPECITABINE. [Suspect]
     Active Substance: CAPECITABINE
     Indication: COLORECTAL CANCER METASTATIC
     Route: 048
  3. IRINOTECAN [Suspect]
     Active Substance: IRINOTECAN
     Indication: COLORECTAL CANCER METASTATIC
     Dosage: EVERY 2 WEEKS
     Route: 065

REACTIONS (5)
  - Haemorrhage [Unknown]
  - Leukopenia [Unknown]
  - Enteritis [Unknown]
  - Ileus [Unknown]
  - Palmar-plantar erythrodysaesthesia syndrome [Unknown]
